FAERS Safety Report 7117648-6 (Version None)
Quarter: 2010Q4

REPORT INFORMATION
  Report Type: 
  Country: None (occurrence: None)
  Receive Date: 20101122
  Receipt Date: 20101115
  Transmission Date: 20110411
  Serious: Yes (Death, Hospitalization, Other)
  Sender: FDA-Public Use
  Company Number: US-AMGEN-USASP2010001508

PATIENT

DRUGS (16)
  1. NPLATE [Suspect]
     Indication: IDIOPATHIC THROMBOCYTOPENIC PURPURA
     Dosage: 1 A?G/KG, UNK
     Dates: start: 20081114, end: 20081114
  2. IMMU-G [Concomitant]
     Indication: IDIOPATHIC THROMBOCYTOPENIC PURPURA
     Dosage: UNK
     Dates: start: 20081013
  3. METOPROLOL TARTRATE [Concomitant]
  4. OMEPRAZOLE [Concomitant]
  5. SENOKOT [Concomitant]
  6. DIOVAN [Concomitant]
  7. MIRALAX [Concomitant]
  8. FERROUS SULFATE [Concomitant]
  9. CYMBALTA [Concomitant]
  10. NEURONTIN [Concomitant]
  11. LEVOTHROID [Concomitant]
  12. PREDNISONE [Concomitant]
  13. FLOMAX [Concomitant]
  14. METHADONE HCL [Concomitant]
  15. NOVOLOG [Concomitant]
  16. HYDROMORPHONE HCL [Concomitant]

REACTIONS (7)
  - DIFFUSE LARGE B-CELL LYMPHOMA [None]
  - EPISTAXIS [None]
  - IDIOPATHIC THROMBOCYTOPENIC PURPURA [None]
  - PAIN [None]
  - PELVIC MASS [None]
  - PLATELET COUNT DECREASED [None]
  - THROMBOCYTOPENIA [None]
